FAERS Safety Report 6042993-5 (Version None)
Quarter: 2009Q1

REPORT INFORMATION
  Report Type: 
  Country: None (occurrence: None)
  Receive Date: 20090119
  Receipt Date: 20090109
  Transmission Date: 20090719
  Serious: Yes (Disabling)
  Sender: FDA-Public Use
  Company Number: SE-BAYER-200911085GPV

PATIENT

DRUGS (1)
  1. MAGNEVIST [Suspect]
     Indication: DRUG USE FOR UNKNOWN INDICATION
     Route: 065

REACTIONS (5)
  - FATIGUE [None]
  - HYPERACUSIS [None]
  - MUSCLE SPASMS [None]
  - PHOTOPHOBIA [None]
  - VISUAL IMPAIRMENT [None]
